FAERS Safety Report 4924696-0 (Version None)
Quarter: 2006Q1

REPORT INFORMATION
  Report Type: 
  Country: None (occurrence: None)
  Receive Date: 20060222
  Receipt Date: 20060209
  Transmission Date: 20060701
  Serious: Yes (Other)
  Sender: FDA-Public Use
  Company Number: 2006-02-0406

PATIENT
  Age: 58 Year
  Sex: Female

DRUGS (4)
  1. PEG-INTRON (PEGINTERFERON ALFA-2B) INJECTABLE [Suspect]
     Indication: CHRONIC HEPATITIS
     Dosage: SEE IMAGE
     Dates: start: 20051007, end: 20050101
  2. PEG-INTRON (PEGINTERFERON ALFA-2B) INJECTABLE [Suspect]
     Indication: CHRONIC HEPATITIS
     Dosage: SEE IMAGE
     Dates: start: 20050101, end: 20051219
  3. REBETOL [Suspect]
     Indication: CHRONIC HEPATITIS
     Dosage: SEE IMAGE
     Route: 048
     Dates: start: 20051007, end: 20050101
  4. REBETOL [Suspect]
     Indication: CHRONIC HEPATITIS
     Dosage: SEE IMAGE
     Route: 048
     Dates: start: 20050101, end: 20051219

REACTIONS (2)
  - DRUG INTERACTION [None]
  - PANCYTOPENIA [None]
